FAERS Safety Report 4483557-4 (Version None)
Quarter: 2004Q4

REPORT INFORMATION
  Report Type: 
  Country: None (occurrence: None)
  Receive Date: 20041021
  Receipt Date: 20041021
  Transmission Date: 20050328
  Serious: Yes (Hospitalization)
  Sender: FDA-Public Use
  Company Number: None

PATIENT
  Age: 83 Year
  Sex: Male
  Weight: 98 kg

DRUGS (7)
  1. ZOLOFT [Suspect]
     Indication: DEPRESSION
     Dates: start: 20040801, end: 20041015
  2. LOPERAMIDE HCL [Concomitant]
  3. LISINOPRIL [Concomitant]
  4. IBUPROFEN [Concomitant]
  5. HYDROCHLOROTHIAZIDE [Concomitant]
  6. ENOXAPARIN SODIUM [Concomitant]
  7. METRONIDAZOLE [Concomitant]

REACTIONS (3)
  - CONDITION AGGRAVATED [None]
  - DIARRHOEA [None]
  - LOOSE STOOLS [None]
